FAERS Safety Report 13705244 (Version 1)
Quarter: 2017Q2

REPORT INFORMATION
  Report Type: Spontaneous
  Country: US (occurrence: US)
  Receive Date: 20170630
  Receipt Date: 20170630
  Transmission Date: 20170830
  Serious: No
  Sender: FDA-Public Use
  Company Number: US-TEVA-747620ACC

PATIENT
  Sex: Male

DRUGS (1)
  1. POTASSIUM CHLORIDE. [Suspect]
     Active Substance: POTASSIUM CHLORIDE

REACTIONS (1)
  - Product physical issue [Unknown]

NARRATIVE: CASE EVENT DATE: 201703
